FAERS Safety Report 4880865-X (Version None)
Quarter: 2005Q4

REPORT INFORMATION
  Report Type: 
  Country: None (occurrence: None)
  Receive Date: 20051223
  Receipt Date: 20051109
  Transmission Date: 20060501
  Serious: No
  Sender: FDA-Public Use
  Company Number: 05P-163-0316987-00

PATIENT
  Age: 55 Year
  Sex: Female
  Weight: 100 kg

DRUGS (8)
  1. HUMIRA [Suspect]
     Indication: RHEUMATOID ARTHRITIS
     Dosage: 40 MG, 1 IN 2 WKS, SUBCUTANEOUS
     Route: 058
     Dates: start: 20030101
  2. CLONIDINE [Concomitant]
  3. HYZAAR [Concomitant]
  4. METOPROLOL SUCCINATE [Concomitant]
  5. AMLODIPINE BESYLATE [Concomitant]
  6. HYDROCHLOROTHIAZIDE [Concomitant]
  7. METHOTREXATE SODIUM [Concomitant]
  8. FOLIC ACID [Concomitant]

REACTIONS (3)
  - PRURITUS [None]
  - RASH PAPULAR [None]
  - SKIN NODULE [None]
